FAERS Safety Report 9373140 (Version 5)
Quarter: 2013Q3

REPORT INFORMATION
  Report Type: Spontaneous
  Country: CN (occurrence: CN)
  Receive Date: 20130627
  Receipt Date: 20130730
  Transmission Date: 20140515
  Serious: Yes (Other)
  Sender: FDA-Public Use
  Company Number: CN-BRACCO-000473

PATIENT
  Age: 55 Year
  Sex: Male
  Weight: 75 kg

DRUGS (15)
  1. IOPAMIRO [Suspect]
     Indication: ANEURYSM REPAIR
     Route: 013
     Dates: start: 20130619, end: 20130619
  2. TROPISETRON [Concomitant]
     Dates: start: 20130619, end: 20130619
  3. PHENYLEPHRINE [Concomitant]
     Dates: start: 20130619, end: 20130619
  4. MIDAZOLAM [Concomitant]
     Dates: start: 20130619, end: 20130619
  5. PROPOFOL [Concomitant]
     Dates: start: 20130619, end: 20130619
  6. FENTANYL [Concomitant]
     Dates: start: 20130619, end: 20130619
  7. SUCCINYLCHOLINE [Concomitant]
     Dates: start: 20130619, end: 20130619
  8. CISATRACURIUM [Concomitant]
     Dates: start: 20130619, end: 20130619
  9. ATROPINE [Concomitant]
     Dates: start: 20130619, end: 20130619
  10. NEOSTIGMINE [Concomitant]
     Dates: start: 20130619, end: 20130619
  11. LIDOCAINE [Concomitant]
     Dates: start: 20130619, end: 20130619
  12. REMIFENTANIL [Concomitant]
     Dates: start: 20130619, end: 20130619
  13. NALOXONE [Concomitant]
     Dates: start: 20130619, end: 20130619
  14. SEVOFLURANE [Concomitant]
     Dates: start: 20130619, end: 20130619
  15. DECADRON [Concomitant]
     Dates: start: 20130619, end: 20130619

REACTIONS (8)
  - Brain oedema [Unknown]
  - Cerebral infarction [Unknown]
  - Delirium [Recovered/Resolved]
  - Dyskinesia [Recovered/Resolved]
  - Muscle tightness [Recovered/Resolved]
  - Mental impairment [Unknown]
  - Pyrexia [Recovered/Resolved]
  - Rash [Recovered/Resolved]
